FAERS Safety Report 7222732-2 (Version None)
Quarter: 2011Q1

REPORT INFORMATION
  Report Type: 
  Country: None (occurrence: None)
  Receive Date: 20110106
  Receipt Date: 20110106
  Transmission Date: 20110831
  Serious: Yes (Other)
  Sender: FDA-Public Use
  Company Number: None

PATIENT
  Age: 57 Year
  Sex: Female
  Weight: 70.3075 kg

DRUGS (1)
  1. PROLIA [Suspect]
     Indication: OSTEOPOROSIS
     Dosage: INJECTION ONE EVERY SIX MOS SQ
     Route: 058
     Dates: start: 20101228, end: 20101228

REACTIONS (2)
  - CYSTITIS [None]
  - UPPER RESPIRATORY TRACT INFECTION [None]
